FAERS Safety Report 12441004 (Version 1)
Quarter: 2016Q2

REPORT INFORMATION
  Report Type: Report from Study
  Country: JP (occurrence: JP)
  Receive Date: 20160607
  Receipt Date: 20160607
  Transmission Date: 20160815
  Serious: Yes (Hospitalization)
  Sender: FDA-Public Use
  Company Number: JP-BIOGEN-A200800015

PATIENT
  Age: 28 Year
  Sex: Male

DRUGS (49)
  1. AVONEX [Suspect]
     Active Substance: INTERFERON BETA-1A
     Indication: RELAPSING-REMITTING MULTIPLE SCLEROSIS
     Route: 030
     Dates: start: 20070214
  2. LIORESAL [Concomitant]
     Active Substance: BACLOFEN
     Indication: PARALYSIS
     Route: 048
     Dates: start: 20080222, end: 20080527
  3. LIORESAL [Concomitant]
     Active Substance: BACLOFEN
     Indication: PARALYSIS
     Route: 048
  4. ACUATIM [Concomitant]
     Active Substance: NADIFLOXACIN
     Indication: ACNE
     Route: 003
     Dates: start: 20071005, end: 20071011
  5. SOLDEM 3A [Concomitant]
     Active Substance: CARBOHYDRATES\POTASSIUM CHLORIDE\SODIUM CHLORIDE\SODIUM LACTATE
     Indication: RELAPSING-REMITTING MULTIPLE SCLEROSIS
     Route: 042
     Dates: start: 20080416, end: 20080416
  6. SOLDEM 3A [Concomitant]
     Active Substance: CARBOHYDRATES\POTASSIUM CHLORIDE\SODIUM CHLORIDE\SODIUM LACTATE
     Indication: RELAPSING-REMITTING MULTIPLE SCLEROSIS
     Route: 042
     Dates: start: 20080618, end: 20080620
  7. SOL-MELCORT [Concomitant]
     Active Substance: METHYLPREDNISOLONE SODIUM SUCCINATE
     Indication: RELAPSING-REMITTING MULTIPLE SCLEROSIS
     Route: 042
     Dates: start: 20070907, end: 20070907
  8. SOL-MELCORT [Concomitant]
     Active Substance: METHYLPREDNISOLONE SODIUM SUCCINATE
     Indication: RELAPSING-REMITTING MULTIPLE SCLEROSIS
     Route: 042
     Dates: start: 20080409, end: 20080409
  9. LIORESAL [Concomitant]
     Active Substance: BACLOFEN
     Indication: PARALYSIS
     Route: 048
     Dates: start: 20071207, end: 20080124
  10. MYSLEE [Concomitant]
     Active Substance: ZOLPIDEM TARTRATE
     Indication: INSOMNIA
     Route: 048
     Dates: start: 20070920, end: 20071002
  11. SULFUR AND CAMPHOR LOTION [Concomitant]
     Indication: ACNE
     Route: 003
     Dates: start: 20071003, end: 20071011
  12. ALTAT [Concomitant]
     Indication: PROPHYLAXIS
  13. SOL-MELCORT [Concomitant]
     Active Substance: METHYLPREDNISOLONE SODIUM SUCCINATE
     Indication: RELAPSING-REMITTING MULTIPLE SCLEROSIS
     Route: 042
     Dates: start: 20080416, end: 20080416
  14. ALTAT [Concomitant]
     Indication: PROPHYLAXIS AGAINST GASTROINTESTINAL ULCER
     Route: 048
     Dates: start: 20080409, end: 20080429
  15. LIORESAL [Concomitant]
     Active Substance: BACLOFEN
     Indication: PARALYSIS
     Route: 048
     Dates: start: 20070202, end: 20070222
  16. LOKIFLAN [Concomitant]
     Indication: PROPHYLAXIS
     Route: 048
     Dates: start: 20070214, end: 20070222
  17. MUCOSTA [Concomitant]
     Active Substance: REBAMIPIDE
     Indication: PROPHYLAXIS AGAINST GASTROINTESTINAL ULCER
     Route: 048
     Dates: start: 20070907, end: 20071012
  18. ALTAT [Concomitant]
     Indication: RELAPSING-REMITTING MULTIPLE SCLEROSIS
     Route: 042
     Dates: start: 20080409, end: 20080410
  19. DEPAS [Concomitant]
     Active Substance: ETIZOLAM
     Indication: PARALYSIS
     Route: 048
     Dates: start: 20080620, end: 20080624
  20. SOL-MELCORT [Concomitant]
     Active Substance: METHYLPREDNISOLONE SODIUM SUCCINATE
     Indication: RELAPSING-REMITTING MULTIPLE SCLEROSIS
     Route: 042
     Dates: start: 20070926, end: 20070928
  21. SOL-MELCORT [Concomitant]
     Active Substance: METHYLPREDNISOLONE SODIUM SUCCINATE
     Indication: RELAPSING-REMITTING MULTIPLE SCLEROSIS
     Route: 042
     Dates: start: 20080618, end: 20080620
  22. MYONAL [Concomitant]
     Active Substance: EPERISONE HYDROCHLORIDE
     Indication: PARALYSIS
     Route: 048
     Dates: start: 20080617
  23. SOLDEM 3A [Concomitant]
     Active Substance: CARBOHYDRATES\POTASSIUM CHLORIDE\SODIUM CHLORIDE\SODIUM LACTATE
     Indication: RELAPSING-REMITTING MULTIPLE SCLEROSIS
     Route: 042
     Dates: start: 20070919, end: 20070921
  24. SOLDEM 3A [Concomitant]
     Active Substance: CARBOHYDRATES\POTASSIUM CHLORIDE\SODIUM CHLORIDE\SODIUM LACTATE
     Indication: RELAPSING-REMITTING MULTIPLE SCLEROSIS
     Route: 042
     Dates: start: 20071004, end: 20071006
  25. SOLDEM 3A [Concomitant]
     Active Substance: CARBOHYDRATES\POTASSIUM CHLORIDE\SODIUM CHLORIDE\SODIUM LACTATE
     Indication: RELAPSING-REMITTING MULTIPLE SCLEROSIS
     Route: 042
     Dates: start: 20080512, end: 20080512
  26. SOL-MELCORT [Concomitant]
     Active Substance: METHYLPREDNISOLONE SODIUM SUCCINATE
     Indication: RELAPSING-REMITTING MULTIPLE SCLEROSIS
     Route: 042
     Dates: start: 20070911, end: 20070913
  27. NEUMETHYCOLE [Concomitant]
     Indication: SENSORY DISTURBANCE
     Route: 048
     Dates: start: 20080512, end: 20080527
  28. SOLDEM 3A [Concomitant]
     Active Substance: CARBOHYDRATES\POTASSIUM CHLORIDE\SODIUM CHLORIDE\SODIUM LACTATE
     Indication: RELAPSING-REMITTING MULTIPLE SCLEROSIS
     Route: 042
     Dates: start: 20070911, end: 20070913
  29. SOLU-CORTEF [Concomitant]
     Active Substance: HYDROCORTISONE SODIUM SUCCINATE
     Indication: PRODUCT USED FOR UNKNOWN INDICATION
     Route: 041
     Dates: start: 20080522, end: 20080524
  30. SOL-MELCORT [Concomitant]
     Active Substance: METHYLPREDNISOLONE SODIUM SUCCINATE
     Indication: RELAPSING-REMITTING MULTIPLE SCLEROSIS
     Route: 042
     Dates: start: 20070919, end: 20070921
  31. SOL-MELCORT [Concomitant]
     Active Substance: METHYLPREDNISOLONE SODIUM SUCCINATE
     Indication: RELAPSING-REMITTING MULTIPLE SCLEROSIS
     Route: 042
     Dates: start: 20071004, end: 20071006
  32. SOL-MELCORT [Concomitant]
     Active Substance: METHYLPREDNISOLONE SODIUM SUCCINATE
     Indication: RELAPSING-REMITTING MULTIPLE SCLEROSIS
     Route: 042
     Dates: start: 20080512, end: 20080512
  33. TRYPTANOL [Concomitant]
     Active Substance: AMITRIPTYLINE
     Indication: SENSORY DISTURBANCE
     Route: 048
     Dates: start: 20070220, end: 20080527
  34. ALTAT [Concomitant]
     Indication: RELAPSING-REMITTING MULTIPLE SCLEROSIS
     Route: 042
     Dates: start: 20070907, end: 20070907
  35. DANTRIUM [Concomitant]
     Active Substance: DANTROLENE SODIUM
     Indication: PARALYSIS
     Route: 048
     Dates: start: 20080528, end: 20080616
  36. SM [Concomitant]
     Indication: PROPHYLAXIS AGAINST GASTROINTESTINAL ULCER
     Route: 048
     Dates: start: 20080602, end: 20080604
  37. SOLDEM 3A [Concomitant]
     Active Substance: CARBOHYDRATES\POTASSIUM CHLORIDE\SODIUM CHLORIDE\SODIUM LACTATE
     Indication: RELAPSING-REMITTING MULTIPLE SCLEROSIS
     Route: 042
     Dates: start: 20080409, end: 20080409
  38. ALTAT [Concomitant]
     Indication: PROPHYLAXIS AGAINST GASTROINTESTINAL ULCER
     Route: 048
     Dates: start: 20070925, end: 20071009
  39. GASTROM [Concomitant]
     Active Substance: ECABET
     Indication: PROPHYLAXIS AGAINST GASTROINTESTINAL ULCER
     Route: 048
     Dates: start: 20070119, end: 20070222
  40. TEGRETOL [Concomitant]
     Active Substance: CARBAMAZEPINE
     Indication: SENSORY DISTURBANCE
     Route: 048
     Dates: start: 20070202, end: 20070222
  41. GLYCEOL [Concomitant]
     Active Substance: GLYCERIN
     Indication: RELAPSING-REMITTING MULTIPLE SCLEROSIS
     Route: 042
     Dates: start: 20070907, end: 20070907
  42. ALTAT [Concomitant]
     Indication: PROPHYLAXIS
     Route: 042
     Dates: start: 20080416, end: 20080416
  43. SOLDEM 3A [Concomitant]
     Active Substance: CARBOHYDRATES\POTASSIUM CHLORIDE\SODIUM CHLORIDE\SODIUM LACTATE
     Indication: RELAPSING-REMITTING MULTIPLE SCLEROSIS
     Route: 042
     Dates: start: 20070926, end: 20070928
  44. ALTAT [Concomitant]
     Indication: PROPHYLAXIS AGAINST GASTROINTESTINAL ULCER
     Route: 048
     Dates: start: 20070119, end: 20070222
  45. GASTROM [Concomitant]
     Active Substance: ECABET
     Indication: PROPHYLAXIS AGAINST GASTROINTESTINAL ULCER
     Route: 048
     Dates: start: 20080409, end: 20080429
  46. LIORESAL [Concomitant]
     Active Substance: BACLOFEN
     Indication: PARALYSIS
     Route: 048
     Dates: start: 20080125, end: 20080221
  47. LOXONIN [Concomitant]
     Active Substance: LOXOPROFEN SODIUM
     Indication: PROPHYLAXIS
     Route: 048
     Dates: start: 20070228
  48. ALTAT [Concomitant]
     Indication: RELAPSING-REMITTING MULTIPLE SCLEROSIS
  49. TERNELIN [Concomitant]
     Active Substance: TIZANIDINE
     Indication: PARALYSIS
     Route: 048
     Dates: start: 20080611, end: 20080612

REACTIONS (7)
  - Vomiting [Recovered/Resolved]
  - Insomnia [Not Recovered/Not Resolved]
  - Multiple sclerosis relapse [Not Recovered/Not Resolved]
  - Nasopharyngitis [Recovered/Resolved]
  - Acne [Not Recovered/Not Resolved]
  - Abdominal distension [Not Recovered/Not Resolved]
  - Multiple sclerosis relapse [Not Recovered/Not Resolved]

NARRATIVE: CASE EVENT DATE: 20070903
